FAERS Safety Report 7095606-8 (Version None)
Quarter: 2010Q4

REPORT INFORMATION
  Report Type: 
  Country: None (occurrence: None)
  Receive Date: 20101111
  Receipt Date: 20101104
  Transmission Date: 20110411
  Serious: Yes (Death, Other)
  Sender: FDA-Public Use
  Company Number: GB-JNJFOC-20101101346

PATIENT
  Sex: Male

DRUGS (1)
  1. RISPERIDONE [Suspect]
     Indication: ILL-DEFINED DISORDER
     Route: 065

REACTIONS (6)
  - DEATH [None]
  - FALL [None]
  - GENERAL PHYSICAL HEALTH DETERIORATION [None]
  - HYPOKINESIA [None]
  - MENTAL IMPAIRMENT [None]
  - POSTURE ABNORMAL [None]
